FAERS Safety Report 10870213 (Version 1)
Quarter: 2015Q1

REPORT INFORMATION
  Report Type: Spontaneous
  Country: FR (occurrence: FR)
  Receive Date: 20150226
  Receipt Date: 20150226
  Transmission Date: 20150721
  Serious: Yes (Hospitalization)
  Sender: FDA-Public Use
  Company Number: FR-SA-2015SA022121

PATIENT
  Age: 14 Year
  Sex: Male

DRUGS (12)
  1. DEPAKINE [Suspect]
     Active Substance: VALPROATE SODIUM
     Route: 048
  2. LASILIX [Suspect]
     Active Substance: FUROSEMIDE
     Route: 048
  3. ADCIRCA [Suspect]
     Active Substance: TADALAFIL
     Route: 048
  4. ALDACTONE [Suspect]
     Active Substance: SPIRONOLACTONE
     Route: 048
  5. NICOBION [Suspect]
     Active Substance: NIACINAMIDE
     Route: 048
  6. PANTOPRAZOLE [Suspect]
     Active Substance: PANTOPRAZOLE SODIUM
     Route: 048
  7. HARVONI [Suspect]
     Active Substance: LEDIPASVIR\SOFOSBUVIR
     Route: 048
  8. IMOVANE [Suspect]
     Active Substance: ZOPICLONE
     Route: 048
  9. XEROQUEL [Suspect]
     Active Substance: QUETIAPINE FUMARATE
     Route: 048
  10. ATARAX [Suspect]
     Active Substance: HYDROXYZINE\HYDROXYZINE HYDROCHLORIDE
     Dosage: STRENGHT: 25 MG
     Route: 048
  11. DEPAKINE [Suspect]
     Active Substance: VALPROATE SODIUM
     Route: 048
  12. COVERSYL [Suspect]
     Active Substance: PERINDOPRIL
     Route: 048

REACTIONS (1)
  - Epilepsy [Recovered/Resolved]

NARRATIVE: CASE EVENT DATE: 20150126
